FAERS Safety Report 15492430 (Version 4)
Quarter: 2023Q2

REPORT INFORMATION
  Report Type: Spontaneous
  Country: US (occurrence: US)
  Receive Date: 20181012
  Receipt Date: 20230504
  Transmission Date: 20230721
  Serious: Yes (Other)
  Sender: FDA-Public Use
  Company Number: US-PFIZER INC-2018405443

PATIENT
  Age: 71 Year
  Sex: Female

DRUGS (1)
  1. XELJANZ XR [Suspect]
     Active Substance: TOFACITINIB CITRATE
     Dosage: 11 MG

REACTIONS (6)
  - Spinal operation [Unknown]
  - Drug ineffective [Unknown]
  - Herpes zoster [Unknown]
  - Pain in extremity [Unknown]
  - Vomiting [Unknown]
  - Post herpetic neuralgia [Unknown]
